FAERS Safety Report 4770637-9 (Version None)
Quarter: 2005Q3

REPORT INFORMATION
  Report Type: 
  Country: None (occurrence: None)
  Receive Date: 20050915
  Receipt Date: 20050725
  Transmission Date: 20060218
  Serious: Yes (Hospitalization)
  Sender: FDA-Public Use
  Company Number: PHBS2005BR10941

PATIENT
  Age: 13 Year
  Sex: Female
  Weight: 61 kg

DRUGS (3)
  1. CODATEN [Suspect]
     Indication: PROCEDURAL PAIN
     Dosage: 50 MG, Q12H
     Route: 048
  2. AMOXICILLIN [Concomitant]
  3. LISADOR [Concomitant]

REACTIONS (7)
  - ABDOMINAL PAIN UPPER [None]
  - DEHYDRATION [None]
  - DERMATITIS ALLERGIC [None]
  - DRUG HYPERSENSITIVITY [None]
  - NAUSEA [None]
  - PALLOR [None]
  - VOMITING [None]
